FAERS Safety Report 6415421-5 (Version None)
Quarter: 2009Q4

REPORT INFORMATION
  Report Type: 
  Country: None (occurrence: None)
  Receive Date: 20091027
  Receipt Date: 20091019
  Transmission Date: 20100525
  Serious: Yes (Other)
  Sender: FDA-Public Use
  Company Number: JP-JNJFOC-20091006981

PATIENT
  Age: 95 Year
  Sex: Female

DRUGS (8)
  1. DUROTEP MT [Suspect]
     Route: 062
  2. DUROTEP MT [Suspect]
     Indication: DRUG USE FOR UNKNOWN INDICATION
     Route: 062
  3. ANPEC (MORPHINE HYDROCHLORIDE) [Concomitant]
     Route: 054
  4. SOLDEM 3A [Concomitant]
     Route: 065
  5. SUBVITAN [Concomitant]
     Route: 065
  6. GLYCERINE [Concomitant]
     Route: 054
  7. MINITRO [Concomitant]
     Route: 062
  8. LENDORMIN D [Concomitant]
     Route: 048

REACTIONS (1)
  - TOXIC SKIN ERUPTION [None]
